FAERS Safety Report 9692620 (Version 2)
Quarter: 2013Q4

REPORT INFORMATION
  Report Type: Spontaneous
  Country: JP (occurrence: JP)
  Receive Date: 20131118
  Receipt Date: 20131212
  Transmission Date: 20140711
  Serious: Yes (Life-Threatening, Hospitalization, Disabling, Other)
  Sender: FDA-Public Use
  Company Number: PHHY2013JP130843

PATIENT
  Age: 8 Year
  Sex: Male

DRUGS (8)
  1. NEORAL [Suspect]
     Indication: RENAL TRANSPLANT
     Route: 048
  2. METHYLPREDNISOLONE [Suspect]
     Indication: IMMUNOSUPPRESSANT DRUG THERAPY
  3. CELLCEPT [Suspect]
     Indication: IMMUNOSUPPRESSANT DRUG THERAPY
     Route: 048
  4. BASILIXIMAB [Concomitant]
     Indication: IMMUNOSUPPRESSANT DRUG THERAPY
  5. TACROLIMUS [Concomitant]
     Indication: IMMUNOSUPPRESSANT DRUG THERAPY
  6. RITUXIMAB [Concomitant]
     Indication: POST TRANSPLANT LYMPHOPROLIFERATIVE DISORDER
  7. CYCLOPHOSPHAMIDE [Concomitant]
     Indication: POST TRANSPLANT LYMPHOPROLIFERATIVE DISORDER
  8. PREDNISOLONE [Concomitant]
     Indication: POST TRANSPLANT LYMPHOPROLIFERATIVE DISORDER

REACTIONS (6)
  - Encephalopathy [Recovered/Resolved with Sequelae]
  - Clonic convulsion [Recovering/Resolving]
  - Pyrexia [Unknown]
  - Coagulopathy [Unknown]
  - Hepatic enzyme increased [Unknown]
  - Respiratory failure [Unknown]
